FAERS Safety Report 4433432-6 (Version None)
Quarter: 2004Q3

REPORT INFORMATION
  Report Type: 
  Country: None (occurrence: None)
  Receive Date: 20040826
  Receipt Date: 20040708
  Transmission Date: 20050211
  Serious: Yes (Hospitalization)
  Sender: FDA-Public Use
  Company Number: PHBS2004JP09201

PATIENT
  Age: 75 Year
  Sex: Male

DRUGS (4)
  1. DIOVAN [Suspect]
     Indication: HYPERTENSION
     Dosage: 40 MG/DAY
     Route: 048
     Dates: start: 20040608, end: 20040703
  2. PARIET [Suspect]
     Indication: GASTRIC ULCER
     Dosage: 10 MG/DAY
     Route: 048
     Dates: start: 20040608, end: 20040703
  3. PURSENNID [Concomitant]
     Route: 048
     Dates: end: 20040703
  4. URSO [Concomitant]
     Route: 048
     Dates: end: 20040703

REACTIONS (5)
  - ACUTE RESPIRATORY DISTRESS SYNDROME [None]
  - DYSPNOEA EXERTIONAL [None]
  - HYPOXIA [None]
  - INTERSTITIAL LUNG DISEASE [None]
  - LYMPHOCYTE STIMULATION TEST POSITIVE [None]
